FAERS Safety Report 6044376-0 (Version None)
Quarter: 2009Q1

REPORT INFORMATION
  Report Type: 
  Country: None (occurrence: None)
  Receive Date: 20090115
  Receipt Date: 20090115
  Transmission Date: 20090719
  Serious: Yes (Hospitalization)
  Sender: FDA-Public Use
  Company Number: None

PATIENT
  Sex: Male
  Weight: 71.9 kg

DRUGS (1)
  1. CYTARABINE [Suspect]
     Dosage: 32400 MG
     Dates: end: 20081226

REACTIONS (5)
  - FACE OEDEMA [None]
  - FEBRILE NEUTROPENIA [None]
  - HYPOTENSION [None]
  - PSEUDOMONAL SEPSIS [None]
  - TOOTH ABSCESS [None]
